FAERS Safety Report 8518347 (Version 4)
Quarter: 2013Q2

REPORT INFORMATION
  Report Type: Spontaneous
  Country: US (occurrence: US)
  Receive Date: 20120417
  Receipt Date: 20130514
  Transmission Date: 20140414
  Serious: No
  Sender: FDA-Public Use
  Company Number: US-ASTRAZENECA-2011SE61288

PATIENT
  Age: 73 Year
  Sex: Male

DRUGS (1)
  1. NEXIUM [Suspect]
     Route: 048

REACTIONS (10)
  - Nervousness [Unknown]
  - Hearing impaired [Unknown]
  - Memory impairment [Unknown]
  - Sleep disorder due to a general medical condition [Unknown]
  - Pain [Unknown]
  - Stress [Unknown]
  - Malaise [Unknown]
  - Flatulence [Unknown]
  - Abdominal pain upper [Unknown]
  - Drug dose omission [Unknown]
